FAERS Safety Report 5019633-7 (Version None)
Quarter: 2006Q2

REPORT INFORMATION
  Report Type: 
  Country: None (occurrence: None)
  Receive Date: 20060601
  Receipt Date: 20060524
  Transmission Date: 20061013
  Serious: Yes (Other)
  Sender: FDA-Public Use
  Company Number: S06-USA-01172-01

PATIENT
  Age: 57 Year
  Sex: Female

DRUGS (8)
  1. THYROID TAB [Suspect]
     Indication: THYROID THERAPY
     Dosage: 15 MG QD PO
     Route: 048
     Dates: end: 20050101
  2. THYROID TAB [Suspect]
     Indication: THYROID THERAPY
     Dosage: 15 MG QD PO
     Route: 048
     Dates: start: 20050101, end: 20060301
  3. THYROID TAB [Suspect]
     Indication: THYROID THERAPY
     Dosage: 15 MG PO
     Route: 048
     Dates: start: 20060401, end: 20060401
  4. THYROID TAB [Suspect]
     Indication: THYROID THERAPY
  5. SYNTHROID [Suspect]
     Indication: THYROID THERAPY
     Dates: start: 20050101, end: 20050101
  6. VITAMIN B COMPLEX CAP [Concomitant]
  7. MULTIVITAMIN (NOS) [Concomitant]
  8. MAGNESIUM [Concomitant]

REACTIONS (14)
  - CARDIOMEGALY [None]
  - CHEST PAIN [None]
  - EYE PAIN [None]
  - HEADACHE [None]
  - INFLUENZA LIKE ILLNESS [None]
  - MUSCULAR WEAKNESS [None]
  - MYOCARDIAL INFARCTION [None]
  - NECK PAIN [None]
  - PAIN IN EXTREMITY [None]
  - PALPITATIONS [None]
  - PHARYNGOLARYNGEAL PAIN [None]
  - PRODUCTIVE COUGH [None]
  - REFUSAL OF TREATMENT BY PATIENT [None]
  - SOMNOLENCE [None]
